FAERS Safety Report 11555521 (Version 1)
Quarter: 2015Q3

REPORT INFORMATION
  Report Type: Spontaneous
  Country: US (occurrence: US)
  Receive Date: 20150925
  Receipt Date: 20150925
  Transmission Date: 20151125
  Serious: Yes (Other)
  Sender: FDA-Public Use
  Company Number: US-PFIZER INC-2015318260

PATIENT
  Sex: Female

DRUGS (9)
  1. CHANTIX [Suspect]
     Active Substance: VARENICLINE TARTRATE
     Dosage: UNK
     Dates: start: 201509
  2. CLORAZEPATE [Interacting]
     Active Substance: CLORAZEPATE DIPOTASSIUM
     Dosage: UNK, 3X/DAY
  3. CLONAZEPAM. [Interacting]
     Active Substance: CLONAZEPAM
     Indication: ANXIETY
     Dosage: 37.5 MG, UNK
  4. KLONOPIN [Interacting]
     Active Substance: CLONAZEPAM
     Dosage: UNK
  5. AMBIEN [Interacting]
     Active Substance: ZOLPIDEM TARTRATE
     Indication: SLEEP DISORDER
     Dosage: UNK
  6. ALLOPURINOL. [Interacting]
     Active Substance: ALLOPURINOL
     Dosage: UNK
  7. OXYCODONE [Interacting]
     Active Substance: OXYCODONE
     Dosage: 40 MG, UNK
  8. ACETAMINOPHEN W/OXYCODONE [Interacting]
     Active Substance: ACETAMINOPHEN\OXYCODONE HYDROCHLORIDE
     Indication: PAIN
     Dosage: 40 MG, 1X/DAY
  9. PURINOL [Interacting]
     Active Substance: ALLOPURINOL
     Dosage: UNK

REACTIONS (5)
  - Tongue oedema [Unknown]
  - Paraesthesia oral [Unknown]
  - Pharyngeal oedema [Unknown]
  - Drug interaction [Unknown]
  - Throat tightness [Unknown]

NARRATIVE: CASE EVENT DATE: 20150921
